FAERS Safety Report 4720666-6 (Version None)
Quarter: 2005Q3

REPORT INFORMATION
  Report Type: 
  Country: None (occurrence: None)
  Receive Date: 20050721
  Receipt Date: 20050713
  Transmission Date: 20060218
  Serious: Yes (Other)
  Sender: FDA-Public Use
  Company Number: 200511506DE

PATIENT
  Age: 75 Year
  Sex: Female

DRUGS (5)
  1. GLYBURIDE [Suspect]
     Indication: DIABETES MELLITUS
     Route: 048
  2. ACCUZIDE [Concomitant]
  3. CARMEN [Concomitant]
  4. METOPROLOL SUCCINATE [Concomitant]
  5. TEBONIN [Concomitant]

REACTIONS (2)
  - BLOOD PRESSURE INCREASED [None]
  - NAUSEA [None]
